FAERS Safety Report 7767795-0 (Version None)
Quarter: 2011Q3

REPORT INFORMATION
  Report Type: 
  Country: None (occurrence: None)
  Receive Date: 20110922
  Receipt Date: 20110413
  Transmission Date: 20111222
  Serious: No
  Sender: FDA-Public Use
  Company Number: US-ASTRAZENECA-2011SE12125

PATIENT
  Age: 657 Month
  Sex: Female
  Weight: 76.2 kg

DRUGS (12)
  1. CYCLOBENZAPR [Concomitant]
     Indication: NERVOUS SYSTEM DISORDER
  2. CELEXA [Concomitant]
  3. METFORMIN HCL [Concomitant]
     Indication: DIABETES MELLITUS
  4. VENTOLIN HFA [Concomitant]
     Indication: ASTHMA
  5. FLEXERIL [Concomitant]
  6. ADVAIR DISKUS 100/50 [Concomitant]
     Indication: CHRONIC OBSTRUCTIVE PULMONARY DISEASE
     Dosage: 250/50 AS REQUIRED
  7. CITALOPRAM HYDROBROMIDE [Concomitant]
  8. HYDROCODONE [Concomitant]
     Indication: GASTRIC DISORDER
     Dosage: 10/325 EVERY SIX HOURS
  9. ADVAIR DISKUS 100/50 [Concomitant]
     Indication: ASTHMA
     Dosage: 250/50 AS REQUIRED
  10. SEROQUEL XR [Suspect]
     Indication: BIPOLAR DISORDER
     Route: 048
     Dates: start: 20080101, end: 20110201
  11. THEOPHYLLINE [Concomitant]
     Indication: CHRONIC OBSTRUCTIVE PULMONARY DISEASE
  12. TRAZODONE HCL [Concomitant]
     Indication: NERVOUSNESS

REACTIONS (5)
  - MALAISE [None]
  - WRONG TECHNIQUE IN DRUG USAGE PROCESS [None]
  - INSOMNIA [None]
  - DRUG DOSE OMISSION [None]
  - FATIGUE [None]
